FAERS Safety Report 5915846-8 (Version None)
Quarter: 2008Q4

REPORT INFORMATION
  Report Type: 
  Country: None (occurrence: None)
  Receive Date: 20081010
  Receipt Date: 20080929
  Transmission Date: 20090506
  Serious: Yes (Disabling)
  Sender: FDA-Public Use
  Company Number: GB-PFIZER INC-2008081984

PATIENT
  Age: 57 Year
  Sex: Female

DRUGS (21)
  1. CHANTIX [Suspect]
     Indication: SMOKING CESSATION THERAPY
     Route: 048
     Dates: start: 20080908, end: 20080912
  2. ACARBOSE [Concomitant]
  3. AMOXICILLIN [Concomitant]
  4. ATORVASTATIN CALCIUM [Concomitant]
  5. BISACODYL [Concomitant]
  6. CO-AMILOFRUSE [Concomitant]
  7. CO-DYDRAMOL [Concomitant]
  8. COMBIVENT [Concomitant]
     Route: 055
  9. DIAZEPAM [Concomitant]
  10. IPRATROPIUM BROMIDE [Concomitant]
     Route: 055
  11. METFORMIN HCL [Concomitant]
  12. ACETAMINOPHEN [Concomitant]
  13. PHYLLOCONTIN [Concomitant]
  14. PREDNISOLONE [Concomitant]
  15. RANITIDINE [Concomitant]
  16. RISEDRONATE SODIUM [Concomitant]
  17. ROSIGLITAZONE [Concomitant]
  18. SALBUTAMOL [Concomitant]
     Route: 055
  19. SYMBICORT [Concomitant]
     Route: 055
  20. TIOTROPIUM BROMIDE [Concomitant]
  21. TRAMADOL HCL [Concomitant]

REACTIONS (1)
  - PANIC ATTACK [None]
